FAERS Safety Report 22966548 (Version 3)
Quarter: 2023Q4

REPORT INFORMATION
  Report Type: Spontaneous
  Country: US (occurrence: US)
  Receive Date: 20230921
  Receipt Date: 20231207
  Transmission Date: 20240110
  Serious: No
  Sender: FDA-Public Use
  Company Number: US-SA-SAC20230918000565

PATIENT
  Age: 68 Year
  Sex: Female

DRUGS (2)
  1. DUPIXENT [Suspect]
     Active Substance: DUPILUMAB
     Indication: Nasal polyps
     Dosage: 1X
     Route: 058
     Dates: start: 20230829, end: 20230829
  2. DUPIXENT [Suspect]
     Active Substance: DUPILUMAB
     Indication: Asthma
     Dosage: 300 MG QOW
     Route: 058
     Dates: start: 20230912

REACTIONS (4)
  - Hypoaesthesia [Unknown]
  - Nerve compression [Unknown]
  - Pain in extremity [Unknown]
  - Weight loss diet [Unknown]

NARRATIVE: CASE EVENT DATE: 20230101
